FAERS Safety Report 4582590-1 (Version None)
Quarter: 2005Q1

REPORT INFORMATION
  Report Type: 
  Country: None (occurrence: None)
  Receive Date: 20050211
  Receipt Date: 20050211
  Transmission Date: 20050727
  Serious: Yes (Life-Threatening, Hospitalization, Other)
  Sender: FDA-Public Use
  Company Number: None

PATIENT
  Age: 57 Year
  Sex: Female
  Weight: 83 kg

DRUGS (11)
  1. DAPTOMYCIN [Suspect]
     Indication: DRUG HYPERSENSITIVITY
     Dosage: 400 MG IV Q 24 HRS
     Route: 042
     Dates: start: 20040728, end: 20040805
  2. DAPTOMYCIN [Suspect]
     Indication: SEPSIS
     Dosage: 400 MG IV Q 24 HRS
     Route: 042
     Dates: start: 20040728, end: 20040805
  3. DAPTOMYCIN [Suspect]
     Indication: STAPHYLOCOCCAL INFECTION
     Dosage: 400 MG IV Q 24 HRS
     Route: 042
     Dates: start: 20040728, end: 20040805
  4. FEXOFENADINE HCL [Concomitant]
  5. REGULAR INSULIN [Concomitant]
  6. CIMETIDINE [Concomitant]
  7. AMLODIPINE [Concomitant]
  8. METHADONE [Concomitant]
  9. INSULIN GLARZINE [Concomitant]
  10. VITAMIN D [Concomitant]
  11. LINEZOLID [Concomitant]

REACTIONS (3)
  - DIALYSIS [None]
  - OLIGURIA [None]
  - RENAL FAILURE ACUTE [None]
